FAERS Safety Report 5041223-0 (Version None)
Quarter: 2006Q3

REPORT INFORMATION
  Report Type: 
  Country: None (occurrence: None)
  Receive Date: 20060703
  Receipt Date: 20060616
  Transmission Date: 20061208
  Serious: Yes (Disabling)
  Sender: FDA-Public Use
  Company Number: BE-GLAXOSMITHKLINE-B0428178A

PATIENT
  Age: 40 Year
  Sex: Male

DRUGS (4)
  1. KIVEXA [Suspect]
     Indication: HIV INFECTION
     Dosage: 1TAB PER DAY
     Route: 065
  2. ZIAGEN [Suspect]
     Indication: HIV INFECTION
     Route: 048
  3. STOCRIN [Suspect]
     Route: 065
  4. EPIVIR [Concomitant]

REACTIONS (2)
  - PSYCHOTIC DISORDER [None]
  - STATUS EPILEPTICUS [None]
